FAERS Safety Report 19574712 (Version 3)
Quarter: 2021Q4

REPORT INFORMATION
  Report Type: Report from Study
  Country: CA (occurrence: CA)
  Receive Date: 20210719
  Receipt Date: 20211108
  Transmission Date: 20220303
  Serious: Yes (Other)
  Sender: FDA-Public Use
  Company Number: CA-ABBVIE-21K-028-3992959-00

PATIENT
  Sex: Female
  Weight: 108.51 kg

DRUGS (2)
  1. HUMIRA [Suspect]
     Active Substance: ADALIMUMAB
     Indication: Rheumatoid arthritis
     Route: 058
     Dates: start: 20190502
  2. METHOTREXATE [Suspect]
     Active Substance: METHOTREXATE
     Indication: Product used for unknown indication
     Route: 065
     Dates: end: 202102

REACTIONS (5)
  - Liver injury [Unknown]
  - Hepatic steatosis [Unknown]
  - Abdominal rigidity [Recovering/Resolving]
  - Weight decreased [Unknown]
  - Defaecation disorder [Recovering/Resolving]
